FAERS Safety Report 4763316-5 (Version None)
Quarter: 2005Q3

REPORT INFORMATION
  Report Type: 
  Country: None (occurrence: None)
  Receive Date: 20050902
  Receipt Date: 20050822
  Transmission Date: 20060218
  Serious: Yes (Hospitalization)
  Sender: FDA-Public Use
  Company Number: FRVA20050023

PATIENT
  Age: 39 Year
  Sex: Female
  Weight: 56.6996 kg

DRUGS (6)
  1. FROVA [Suspect]
     Indication: MIGRAINE
     Dosage: 2.5 MG ONCE PO
     Route: 048
     Dates: start: 20050803, end: 20050803
  2. CELEXA [Concomitant]
  3. VICODIN [Concomitant]
  4. NORTRIPTYLINE HCL [Concomitant]
  5. TETRACYCLINE [Concomitant]
  6. ALPRAZOLAM [Concomitant]

REACTIONS (12)
  - BLOOD PRESSURE SYSTOLIC INCREASED [None]
  - BUNDLE BRANCH BLOCK RIGHT [None]
  - CONVULSION [None]
  - EXCORIATION [None]
  - GRAND MAL CONVULSION [None]
  - HEART RATE INCREASED [None]
  - IDIOSYNCRATIC DRUG REACTION [None]
  - LOSS OF CONSCIOUSNESS [None]
  - OPIATES POSITIVE [None]
  - TONGUE BITING [None]
  - TONGUE DISORDER [None]
  - TREMOR [None]
